FAERS Safety Report 23507918 (Version 2)
Quarter: 2024Q2

REPORT INFORMATION
  Report Type: Report from Study
  Country: US (occurrence: US)
  Receive Date: 20240209
  Receipt Date: 20240509
  Transmission Date: 20240715
  Serious: No
  Sender: FDA-Public Use
  Company Number: US-ALXN-202402USA000151US

PATIENT
  Sex: Female

DRUGS (1)
  1. STRENSIQ [Suspect]
     Active Substance: ASFOTASE ALFA
     Indication: Hypophosphatasia
     Dosage: UNK
     Route: 065

REACTIONS (18)
  - Hypokinesia [Unknown]
  - Gait disturbance [Unknown]
  - Blood thyroid stimulating hormone increased [Unknown]
  - Blood parathyroid hormone increased [Unknown]
  - Cough [Unknown]
  - Diarrhoea [Unknown]
  - Arthralgia [Unknown]
  - Myalgia [Unknown]
  - Joint swelling [Unknown]
  - Eye pain [Unknown]
  - Ocular hyperaemia [Unknown]
  - Dry eye [Unknown]
  - Visual impairment [Unknown]
  - Peripheral swelling [Unknown]
  - Laboratory test abnormal [Unknown]
  - Calcium ionised increased [Unknown]
  - Vitamin D abnormal [Unknown]
  - Protein total increased [Unknown]

NARRATIVE: CASE EVENT DATE: 20230201
